FAERS Safety Report 7370450 (Version 8)
Quarter: 2012Q4

REPORT INFORMATION
  Report Type: 
  Country: CA (occurrence: CA)
  Receive Date: 20100429
  Receipt Date: 20121127
  Transmission Date: 20130627
  Serious: Yes (Hospitalization, Other)
  Sender: FDA-Public Use
  Company Number: PHHY2010CA25403

PATIENT
  Sex: Male

DRUGS (1)
  1. SANDOSTATIN LAR [Suspect]
     Indication: PANCREATIC NEUROENDOCRINE TUMOUR
     Dosage: 30 mg, every 4 weeks
     Route: 030
     Dates: start: 20081102

REACTIONS (9)
  - Gastroenteritis viral [Unknown]
  - Abdominal pain [Unknown]
  - Colon neoplasm [Unknown]
  - Mass [Unknown]
  - Colonoscopy abnormal [Unknown]
  - Gastrointestinal inflammation [Recovered/Resolved]
  - Haematochezia [Unknown]
  - Malignant neoplasm progression [Unknown]
  - Wound [Unknown]
